FAERS Safety Report 12203530 (Version 1)
Quarter: 2016Q1

REPORT INFORMATION
  Report Type: Spontaneous
  Country: US (occurrence: None)
  Receive Date: 20160322
  Receipt Date: 20160322
  Transmission Date: 20160526
  Serious: No
  Sender: FDA-Public Use
  Company Number: None

PATIENT
  Age: 51 Year
  Sex: Male
  Weight: 83.92 kg

DRUGS (2)
  1. GAS-X EXTRA STRENGTH [Suspect]
     Active Substance: DIMETHICONE
     Indication: FLATULENCE
     Dosage: CHEW 1 OR 2 TABLETS  FOUR TIMES DAILY  TAKEN BY MOUTH
     Route: 048
     Dates: start: 20160320, end: 20160321
  2. CELESTIAL SEASONS HERBAL TEA [Concomitant]

REACTIONS (2)
  - Dizziness [None]
  - Blood pressure increased [None]

NARRATIVE: CASE EVENT DATE: 20160321
